FAERS Safety Report 5590726-9 (Version None)
Quarter: 2008Q1

REPORT INFORMATION
  Report Type: 
  Country: None (occurrence: None)
  Receive Date: 20080114
  Receipt Date: 20080107
  Transmission Date: 20080703
  Serious: Yes (Death, Hospitalization)
  Sender: FDA-Public Use
  Company Number: US-GILEAD-2007-0014757

PATIENT
  Sex: Female
  Weight: 86 kg

DRUGS (3)
  1. LETAIRIS [Suspect]
     Route: 048
     Dates: start: 20071018
  2. LETAIRIS [Suspect]
     Route: 048
     Dates: start: 20070830, end: 20071018
  3. COUMADIN [Concomitant]

REACTIONS (1)
  - HAEMORRHAGE [None]
